FAERS Safety Report 19353092 (Version 1)
Quarter: 2021Q2

REPORT INFORMATION
  Report Type: Spontaneous
  Country: US (occurrence: US)
  Receive Date: 20210601
  Receipt Date: 20210601
  Transmission Date: 20210717
  Serious: Yes (Other)
  Sender: FDA-Public Use
  Company Number: US-PFIZER INC-2021581461

PATIENT
  Age: 83 Year
  Sex: Male

DRUGS (2)
  1. ENTRESTO [Suspect]
     Active Substance: SACUBITRIL\VALSARTAN
  2. VYNDAMAX [Suspect]
     Active Substance: TAFAMIDIS
     Dosage: 61 MG

REACTIONS (5)
  - Neoplasm malignant [Unknown]
  - Dizziness [Unknown]
  - Diabetes mellitus [Unknown]
  - Blood pressure decreased [Unknown]
  - Hypertension [Unknown]
